FAERS Safety Report 10446734 (Version 1)
Quarter: 2014Q3

REPORT INFORMATION
  Report Type: Spontaneous
  Country: US (occurrence: None)
  Receive Date: 20140909
  Receipt Date: 20140909
  Transmission Date: 20150326
  Serious: Yes (Other)
  Sender: FDA-Public Use
  Company Number: 2014US003652

PATIENT
  Age: 28 Year
  Sex: Male

DRUGS (3)
  1. ICLUSIG [Suspect]
     Active Substance: PONATINIB
     Indication: CHRONIC MYELOID LEUKAEMIA
     Route: 048
     Dates: start: 20140614
  2. NORVASC [Concomitant]
     Active Substance: AMLODIPINE BESYLATE
  3. HYDROXYUREA (HYDROXYUREA) [Concomitant]

REACTIONS (2)
  - Discomfort [None]
  - Eye disorder [None]
